FAERS Safety Report 12979134 (Version 3)
Quarter: 2016Q4

REPORT INFORMATION
  Report Type: Report from Study
  Country: CN (occurrence: CN)
  Receive Date: 20161128
  Receipt Date: 20161216
  Transmission Date: 20170207
  Serious: Yes (Hospitalization)
  Sender: FDA-Public Use
  Company Number: CN-GLAXOSMITHKLINE-CN2016GSK173068

PATIENT
  Age: 39 Year
  Sex: Female
  Weight: 49.5 kg

DRUGS (8)
  1. MAGNESIUM SULFATE. [Concomitant]
     Active Substance: MAGNESIUM SULFATE
     Indication: CONVULSION PROPHYLAXIS
     Dosage: 20 MG, QD
     Route: 042
     Dates: start: 20161112, end: 20161117
  2. BELIMUMAB [Suspect]
     Active Substance: BELIMUMAB
     Indication: SYSTEMIC LUPUS ERYTHEMATOSUS
     Dosage: 10 MG/KG, CYC
     Route: 042
     Dates: start: 20131210, end: 20141111
  3. BELIMUMAB [Suspect]
     Active Substance: BELIMUMAB
     Indication: SYSTEMIC LUPUS ERYTHEMATOSUS
     Dosage: UNK
     Dates: start: 20141202
  4. ONDANSETRON HYDROCHLORIDE AND SODIUM CHLORIDE INJECTION [Concomitant]
     Indication: CONVULSION PROPHYLAXIS
     Dosage: 100 MG, PRN
     Route: 042
     Dates: start: 20161112, end: 20161112
  5. OMPRAZOLE SODIUM FOR INJECTION [Concomitant]
     Indication: ERUCTATION
     Dosage: 40 MG, TID
     Route: 042
     Dates: start: 20161112
  6. ALBUMIN HUMAN [Concomitant]
     Active Substance: ALBUMIN HUMAN
     Indication: HAEMANGIOMA OF LIVER
     Dosage: 10 G, PRN
     Route: 042
     Dates: start: 20161117, end: 20161117
  7. RACEANISODAMINE HYDROCHLORIDE [Concomitant]
     Indication: PROPHYLAXIS
     Dosage: 20 MG, QD
     Route: 042
     Dates: start: 20161112, end: 20161117
  8. CELECOXIB. [Concomitant]
     Active Substance: CELECOXIB
     Indication: ANALGESIC THERAPY
     Dosage: 20 MG, BID
     Route: 048
     Dates: start: 20161117

REACTIONS (2)
  - Cholelithiasis [Recovered/Resolved]
  - Haemangioma of liver [Recovering/Resolving]

NARRATIVE: CASE EVENT DATE: 20161110
